FAERS Safety Report 15250998 (Version 1)
Quarter: 2018Q3

REPORT INFORMATION
  Report Type: Spontaneous
  Country: US (occurrence: None)
  Receive Date: 20180807
  Receipt Date: 20180807
  Transmission Date: 20181010
  Serious: Yes (Hospitalization)
  Sender: FDA-Public Use
  Company Number: 18-069

PATIENT
  Sex: Female

DRUGS (1)
  1. WOMANS LAXATIVE [Suspect]
     Active Substance: BISACODYL
     Indication: CONSTIPATION
     Route: 048
     Dates: start: 20180709

REACTIONS (3)
  - Rectal haemorrhage [None]
  - Constipation [None]
  - Pain [None]

NARRATIVE: CASE EVENT DATE: 20180709
